FAERS Safety Report 8121942-X (Version None)
Quarter: 2012Q1

REPORT INFORMATION
  Report Type: 
  Country: None (occurrence: None)
  Receive Date: 20120208
  Receipt Date: 20120126
  Transmission Date: 20120608
  Serious: Yes (Life-Threatening)
  Sender: FDA-Public Use
  Company Number: BE-UCBSA-042738

PATIENT
  Age: 34 Year
  Sex: Male

DRUGS (4)
  1. VALPROIC ACID [Concomitant]
  2. LEVETIRACETAM [Concomitant]
     Route: 048
  3. PHENYTOIN [Concomitant]
  4. VIMPAT [Suspect]
     Route: 048
     Dates: start: 20110124, end: 20110407

REACTIONS (2)
  - CONDUCTION DISORDER [None]
  - LOSS OF CONSCIOUSNESS [None]
